FAERS Safety Report 7767007-8 (Version None)
Quarter: 2011Q3

REPORT INFORMATION
  Report Type: 
  Country: None (occurrence: None)
  Receive Date: 20110922
  Receipt Date: 20110912
  Transmission Date: 20111222
  Serious: Yes (Hospitalization)
  Sender: FDA-Public Use
  Company Number: FR-UCBSA-041202

PATIENT
  Sex: Female

DRUGS (12)
  1. TARKA [Concomitant]
  2. XYZAL [Suspect]
     Dosage: TOTAL DAILY DOSE : 5 MG
     Route: 048
     Dates: start: 20110809, end: 20110813
  3. CYTEAL [Suspect]
     Route: 061
     Dates: start: 20110809, end: 20110813
  4. PRAVASTATINE WINTHROP [Suspect]
     Dosage: TOTAL DAILY DOSE : 20 MG
     Route: 048
     Dates: end: 20110813
  5. GLIMEPIRIDE [Concomitant]
     Dosage: 4 MG
  6. METFORMIN WINTHROP [Concomitant]
     Dosage: 1000 MG
  7. KLIPAL CODEINE [Suspect]
     Indication: PAIN IN EXTREMITY
     Dosage: 300 MG/25 MG; 1 TABLET
     Route: 048
     Dates: start: 20110729, end: 20110813
  8. DIPROSONE [Suspect]
     Route: 061
     Dates: start: 20110809, end: 20110813
  9. NUREFLEX [Suspect]
     Route: 048
     Dates: end: 20110813
  10. JANUVIA [Concomitant]
     Dosage: 100 MG
  11. SPIRONOLACTONE ALTIZIDE WINTHROP [Suspect]
     Dosage: 1 TABLET; 25 MG/15 MG
     Route: 048
     Dates: start: 20110809, end: 20110813
  12. CATAPRES [Concomitant]
     Dosage: 0.15 MG

REACTIONS (3)
  - ERYSIPELAS [None]
  - PRURITUS GENERALISED [None]
  - URTICARIA [None]
